FAERS Safety Report 4764340-9 (Version None)
Quarter: 2005Q3

REPORT INFORMATION
  Report Type: 
  Country: None (occurrence: None)
  Receive Date: 20050909
  Receipt Date: 20050303
  Transmission Date: 20060218
  Serious: Yes (Hospitalization)
  Sender: FDA-Public Use
  Company Number: JP-SP-2005-00504

PATIENT
  Age: 73 Year
  Sex: Male

DRUGS (6)
  1. IMMUCYST [Suspect]
     Indication: BLADDER CANCER
     Route: 043
     Dates: start: 20050104, end: 20050216
  2. IMMUCYST [Suspect]
     Route: 043
     Dates: start: 20050104, end: 20050216
  3. CEFDINIR [Concomitant]
     Indication: INFECTION PROPHYLAXIS
     Dosage: 300MG/DAY
     Route: 048
     Dates: start: 20041224, end: 20050110
  4. QUAZEPAM [Concomitant]
     Indication: INSOMNIA
     Dosage: 1 TAB/DAY
     Route: 048
     Dates: start: 20050116, end: 20050216
  5. DICLOFENAC SODIUM [Concomitant]
     Indication: PAIN
     Dosage: 1 TAB/DAY
     Route: 048
     Dates: start: 20050121, end: 20050123
  6. LOXOPROFEN SODIUM [Concomitant]
     Indication: BLADDER PAIN
     Dosage: 60-180MG/DAY
     Route: 048
     Dates: start: 20050111, end: 20050228

REACTIONS (4)
  - BLADDER STENOSIS [None]
  - HAEMATURIA [None]
  - HYPERTONIC BLADDER [None]
  - THERAPY NON-RESPONDER [None]
